FAERS Safety Report 20129626 (Version 1)
Quarter: 2021Q4

REPORT INFORMATION
  Report Type: Spontaneous
  Country: US (occurrence: US)
  Receive Date: 20211130
  Receipt Date: 20211130
  Transmission Date: 20220304
  Serious: No
  Sender: FDA-Public Use
  Company Number: US-UNITED THERAPEUTICS-UNT-2021-022669

PATIENT
  Sex: Female
  Weight: 81.179 kg

DRUGS (3)
  1. REMODULIN [Suspect]
     Active Substance: TREPROSTINIL
     Indication: Pulmonary arterial hypertension
     Dosage: UNK, CONTINUING
     Route: 041
     Dates: start: 20180705
  2. REMODULIN [Suspect]
     Active Substance: TREPROSTINIL
     Dosage: 0.0926 ?G/KG, CONTINUING
     Route: 041
  3. BOSENTAN [Concomitant]
     Active Substance: BOSENTAN
     Indication: Product used for unknown indication
     Dosage: UNK
     Route: 065

REACTIONS (8)
  - Dyspnoea exertional [Unknown]
  - Fatigue [Unknown]
  - Palpitations [Unknown]
  - Tongue erythema [Unknown]
  - Tongue discomfort [Unknown]
  - Glossodynia [Unknown]
  - Intentional product use issue [Unknown]
  - Device leakage [Unknown]
